FAERS Safety Report 21288098 (Version 1)
Quarter: 2022Q3

REPORT INFORMATION
  Report Type: Spontaneous
  Country: US (occurrence: US)
  Receive Date: 20220902
  Receipt Date: 20220902
  Transmission Date: 20221027
  Serious: No
  Sender: FDA-Public Use
  Company Number: US-ABBVIE-22K-163-4480722-00

PATIENT
  Age: 80 Year

DRUGS (1)
  1. ANDROGEL [Suspect]
     Active Substance: TESTOSTERONE
     Indication: Product used for unknown indication
     Dosage: STICK PACK 1.25G
     Route: 061
     Dates: end: 20220609

REACTIONS (2)
  - Androgen deficiency [Unknown]
  - Dermal absorption impaired [Unknown]
